FAERS Safety Report 13588117 (Version 1)
Quarter: 2017Q2

REPORT INFORMATION
  Report Type: Spontaneous
  Country: GB (occurrence: GB)
  Receive Date: 20170528
  Receipt Date: 20170528
  Transmission Date: 20170830
  Serious: Yes (Other)
  Sender: FDA-Public Use
  Company Number: GB-DEXPHARM-20170791

PATIENT
  Age: 55 Year
  Sex: Male
  Weight: 120 kg

DRUGS (5)
  1. ASPIRIN. [Concomitant]
     Active Substance: ASPIRIN
  2. LIPOSTAT [Concomitant]
     Active Substance: PRAVASTATIN SODIUM
  3. OMEPRAZOLE. [Suspect]
     Active Substance: OMEPRAZOLE
     Indication: PROPHYLAXIS AGAINST GASTROINTESTINAL ULCER
     Route: 048
     Dates: start: 20170115, end: 20170502
  4. BISOPROLOL [Concomitant]
     Active Substance: BISOPROLOL
  5. MIRTAZAPIN [Concomitant]
     Active Substance: MIRTAZAPINE

REACTIONS (5)
  - Dizziness [Not Recovered/Not Resolved]
  - Wheezing [Recovered/Resolved with Sequelae]
  - Diarrhoea [Unknown]
  - Malaise [Unknown]
  - Paraesthesia [Recovered/Resolved with Sequelae]
